FAERS Safety Report 23946269 (Version 1)
Quarter: 2024Q2

REPORT INFORMATION
  Report Type: Spontaneous
  Country: US (occurrence: US)
  Receive Date: 20240606
  Receipt Date: 20240606
  Transmission Date: 20240715
  Serious: No
  Sender: FDA-Public Use
  Company Number: US-MYLANLABS-2024M1047380

PATIENT
  Sex: Male

DRUGS (2)
  1. GEODON [Suspect]
     Active Substance: ZIPRASIDONE HYDROCHLORIDE\ZIPRASIDONE MESYLATE
     Indication: Product used for unknown indication
     Dosage: UNK
     Route: 065
  2. VELSIPITY [Suspect]
     Active Substance: ETRASIMOD ARGININE
     Indication: Product used for unknown indication
     Dosage: 2 MILLIGRAM
     Route: 065

REACTIONS (1)
  - Hypersensitivity [Unknown]
